FAERS Safety Report 10767185 (Version 4)
Quarter: 2015Q2

REPORT INFORMATION
  Report Type: Report from Study
  Country: BR (occurrence: BR)
  Receive Date: 20150205
  Receipt Date: 20150402
  Transmission Date: 20150821
  Serious: Yes (Other)
  Sender: FDA-Public Use
  Company Number: PHHY2015BR014280

PATIENT
  Sex: Female

DRUGS (9)
  1. EXELON [Suspect]
     Active Substance: RIVASTIGMINE TARTRATE
     Indication: DEMENTIA ALZHEIMER^S TYPE
     Dosage: 1.5 MG, BID (TWO TIMES A DAY BEFORE FEEDING)
     Route: 048
     Dates: start: 2005
  2. ALOIS [Concomitant]
     Active Substance: MEMANTINE
     Indication: DEMENTIA ALZHEIMER^S TYPE
     Dosage: 1 DF, QD
     Route: 048
  3. SEROQUEL [Concomitant]
     Active Substance: QUETIAPINE FUMARATE
     Indication: DEMENTIA ALZHEIMER^S TYPE
     Dosage: 3 OT, QD
     Route: 048
  4. AZOPT [Concomitant]
     Active Substance: BRINZOLAMIDE
     Indication: GLAUCOMA
     Dosage: 1 GTT, QD (ONE DROP IN THE LEFT EYE PER DAY)
     Route: 047
  5. EXELON [Suspect]
     Active Substance: RIVASTIGMINE TARTRATE
     Dosage: 1.5 MG, BID (TWO TIMES A DAY BEFORE FEEDING)
     Route: 048
     Dates: start: 2005
  6. EXELON [Suspect]
     Active Substance: RIVASTIGMINE TARTRATE
     Dosage: 1.5 MG, BID (TWO TIMES A DAY BEFORE FEEDING)
     Route: 048
     Dates: start: 2005
  7. CARBAMAZEPINA [Concomitant]
     Active Substance: CARBAMAZEPINE
     Indication: DEMENTIA ALZHEIMER^S TYPE
     Dosage: 3 DF, QD (ONE TABLET IN THE MORNING AND TWO TABLETS AT NIGHT)
     Route: 065
  8. EXELON PATCH [Suspect]
     Active Substance: RIVASTIGMINE
     Indication: DEMENTIA ALZHEIMER^S TYPE
     Dosage: 9.5 MG, QD (1 PATCH OF 10 CM2 PER DAY)
     Route: 062
  9. ALPRAZOLAM. [Suspect]
     Active Substance: ALPRAZOLAM
     Indication: PRODUCT USED FOR UNKNOWN INDICATION
     Dosage: 1 DF, QHS
     Route: 065

REACTIONS (4)
  - Retching [Recovered/Resolved]
  - Hypokinesia [Not Recovered/Not Resolved]
  - Abasia [Not Recovered/Not Resolved]
  - Dysphagia [Not Recovered/Not Resolved]

NARRATIVE: CASE EVENT DATE: 2005
